FAERS Safety Report 8034092-8 (Version None)
Quarter: 2011Q4

REPORT INFORMATION
  Report Type: 
  Country: None (occurrence: None)
  Receive Date: 20111227
  Receipt Date: 20111213
  Transmission Date: 20120403
  Serious: Yes (Other)
  Sender: FDA-Public Use
  Company Number: 2011SP054331

PATIENT
  Age: 42 Year
  Sex: Female

DRUGS (9)
  1. VICTRELIS [Suspect]
     Indication: PRODUCT USED FOR UNKNOWN INDICATION
     Dosage: 4 DF;TID;PO
     Route: 048
     Dates: start: 20111011
  2. RIBAVIRIN [Suspect]
     Indication: PRODUCT USED FOR UNKNOWN INDICATION
  3. GABAPENTIN [Concomitant]
  4. VISTARIL [Concomitant]
  5. IBUPROFEN (ADVIL) [Concomitant]
  6. PANTOPRAZOLE [Concomitant]
  7. VENTOLIN HFA [Concomitant]
  8. PEGASYS [Suspect]
     Indication: PRODUCT USED FOR UNKNOWN INDICATION
  9. ESTRADERM [Concomitant]

REACTIONS (5)
  - VOMITING [None]
  - WHITE BLOOD CELL COUNT DECREASED [None]
  - DIARRHOEA [None]
  - NAUSEA [None]
  - INFLUENZA LIKE ILLNESS [None]
